FAERS Safety Report 15907226 (Version 2)
Quarter: 2019Q2

REPORT INFORMATION
  Report Type: Spontaneous
  Country: US (occurrence: US)
  Receive Date: 20190204
  Receipt Date: 20190415
  Transmission Date: 20190711
  Serious: No
  Sender: FDA-Public Use
  Company Number: US-PFIZER INC-2019048579

PATIENT
  Age: 39 Year
  Sex: Female
  Weight: 108.9 kg

DRUGS (1)
  1. LEVOFLOXACIN. [Suspect]
     Active Substance: LEVOFLOXACIN
     Dosage: UNK

REACTIONS (3)
  - Swelling [Unknown]
  - Urticaria [Unknown]
  - Drug hypersensitivity [Unknown]
